FAERS Safety Report 12335028 (Version 1)
Quarter: 2016Q2

REPORT INFORMATION
  Report Type: Spontaneous
  Country: US (occurrence: US)
  Receive Date: 20160504
  Receipt Date: 20160504
  Transmission Date: 20160815
  Serious: Yes (Other)
  Sender: FDA-Public Use
  Company Number: US-PFIZER INC-2016226465

PATIENT
  Age: 1 Year
  Sex: Male
  Weight: 12.5 kg

DRUGS (2)
  1. POLYVISOL [Concomitant]
     Dosage: 1 ML, DAILY (1 ML ORAL LIQUID DAILY)
     Route: 048
  2. BENEFIX [Suspect]
     Active Substance: COAGULATION FACTOR IX RECOMBINANT HUMAN\ISOPROPYL ALCOHOL
     Indication: FACTOR IX DEFICIENCY
     Dosage: UNK
     Dates: start: 20151012

REACTIONS (4)
  - Anaphylactic shock [Recovered/Resolved]
  - Urticaria [Unknown]
  - Off label use [Unknown]
  - Factor IX inhibition [Unknown]

NARRATIVE: CASE EVENT DATE: 20151222
